FAERS Safety Report 11327750 (Version 2)
Quarter: 2015Q3

REPORT INFORMATION
  Report Type: Spontaneous
  Country: CA (occurrence: CA)
  Receive Date: 20150731
  Receipt Date: 20150918
  Transmission Date: 20151125
  Serious: Yes (Other)
  Sender: FDA-Public Use
  Company Number: CA-SA-2015SA110720

PATIENT
  Sex: Female

DRUGS (6)
  1. ADRIAMYCIN [Concomitant]
     Active Substance: DOXORUBICIN HYDROCHLORIDE
  2. PACLITAXEL. [Concomitant]
     Active Substance: PACLITAXEL
     Dosage: FORM: LIQUID INTRAVENOUS
  3. PERJETA [Suspect]
     Active Substance: PERTUZUMAB
     Indication: BREAST CANCER
     Route: 042
  4. TRASTUZUMAB [Suspect]
     Active Substance: TRASTUZUMAB
     Indication: BREAST CANCER
     Route: 042
  5. TAXOTERE [Suspect]
     Active Substance: DOCETAXEL
     Indication: BREAST CANCER
     Dosage: IV SOLUTION:FORM
     Route: 042
  6. VINORELBINE TARTRATE. [Concomitant]
     Active Substance: VINORELBINE TARTRATE
     Route: 042

REACTIONS (1)
  - Pituitary tumour [Unknown]
